FAERS Safety Report 7999879-6 (Version None)
Quarter: 2011Q4

REPORT INFORMATION
  Report Type: 
  Country: None (occurrence: None)
  Receive Date: 20111222
  Receipt Date: 20111212
  Transmission Date: 20120403
  Serious: No
  Sender: FDA-Public Use
  Company Number: US-BIOGENIDEC-2011BI047028

PATIENT
  Sex: Female

DRUGS (5)
  1. TYSABRI [Suspect]
     Indication: MULTIPLE SCLEROSIS
     Route: 042
     Dates: start: 20090507
  2. TYSABRI [Suspect]
     Route: 042
  3. AVONEX [Concomitant]
     Indication: MULTIPLE SCLEROSIS
     Route: 030
  4. TYSABRI [Suspect]
     Route: 042
     Dates: start: 20080228, end: 20080925
  5. AVONEX [Concomitant]
     Route: 030

REACTIONS (6)
  - EYE DISORDER [None]
  - HEADACHE [None]
  - FALL [None]
  - HYPOAESTHESIA [None]
  - VISUAL ACUITY REDUCED [None]
  - MUSCULAR WEAKNESS [None]
